FAERS Safety Report 9988174 (Version 2)
Quarter: 2014Q2

REPORT INFORMATION
  Report Type: Spontaneous
  Country: US (occurrence: US)
  Receive Date: 20140309
  Receipt Date: 20140401
  Transmission Date: 20141212
  Serious: No
  Sender: FDA-Public Use
  Company Number: US-009507513-1403USA001038

PATIENT
  Sex: 0

DRUGS (1)
  1. ZETIA [Suspect]

REACTIONS (1)
  - Liver function test abnormal [Unknown]
